FAERS Safety Report 25052546 (Version 1)
Quarter: 2025Q1

REPORT INFORMATION
  Report Type: Report from Study
  Country: IT (occurrence: IT)
  Receive Date: 20250307
  Receipt Date: 20250307
  Transmission Date: 20250409
  Serious: Yes (Life-Threatening, Hospitalization)
  Sender: MYLAN
  Company Number: IT-MYLANLABS-2025M1018743

PATIENT
  Sex: Male

DRUGS (8)
  1. HEPARIN [Suspect]
     Active Substance: HEPARIN SODIUM
     Indication: Anticoagulant therapy
  2. HEPARIN [Suspect]
     Active Substance: HEPARIN SODIUM
     Route: 065
  3. HEPARIN [Suspect]
     Active Substance: HEPARIN SODIUM
     Route: 065
  4. HEPARIN [Suspect]
     Active Substance: HEPARIN SODIUM
  5. PROTAMINE SULFATE [Concomitant]
     Active Substance: PROTAMINE SULFATE
     Indication: Heparin neutralisation therapy
  6. PROTAMINE SULFATE [Concomitant]
     Active Substance: PROTAMINE SULFATE
     Route: 065
  7. PROTAMINE SULFATE [Concomitant]
     Active Substance: PROTAMINE SULFATE
     Route: 065
  8. PROTAMINE SULFATE [Concomitant]
     Active Substance: PROTAMINE SULFATE

REACTIONS (4)
  - Cardiac arrest [Unknown]
  - Myocardial infarction [Unknown]
  - Coronary artery thrombosis [Unknown]
  - Heparin-induced thrombocytopenia [Unknown]
